FAERS Safety Report 8809349 (Version 1)
Quarter: 2012Q4

REPORT INFORMATION
  Report Type: 
  Country: US (occurrence: US)
  Receive Date: 20120926
  Receipt Date: 20120926
  Transmission Date: 20130627
  Serious: Yes (Hospitalization, Other)
  Sender: FDA-Public Use
  Company Number: US-JNJFOC-20120908381

PATIENT

DRUGS (3)
  1. GALANTAMINE [Suspect]
     Indication: PRODUCT USED FOR UNKNOWN INDICATION
     Dosage: for 7 days followed by a co-administration period of 10 days with avagacestat
     Route: 065
  2. GALANTAMINE [Suspect]
     Indication: PRODUCT USED FOR UNKNOWN INDICATION
     Dosage: for 7 days
     Route: 065
  3. AVAGACESTAT [Interacting]
     Indication: PRODUCT USED FOR UNKNOWN INDICATION
     Dosage: for 10 days
     Route: 065

REACTIONS (3)
  - Pancreatitis [Recovered/Resolved]
  - Cholelithiasis [Recovered/Resolved]
  - Drug interaction [Recovered/Resolved]
